FAERS Safety Report 24806371 (Version 3)
Quarter: 2025Q3

REPORT INFORMATION
  Report Type: Spontaneous
  Country: US (occurrence: US)
  Receive Date: 20250103
  Receipt Date: 20250807
  Transmission Date: 20251021
  Serious: Yes (Death, Life-Threatening, Other)
  Sender: PFIZER
  Company Number: US-PFIZER INC-PV202400170346

PATIENT
  Age: 70 Year
  Sex: Male

DRUGS (5)
  1. METHYLPREDNISOLONE SODIUM SUCCINATE [Suspect]
     Active Substance: METHYLPREDNISOLONE SODIUM SUCCINATE
     Indication: Renal transplant
  2. IVERMECTIN [Suspect]
     Active Substance: IVERMECTIN
     Indication: Strongyloidiasis
  3. ALBENDAZOLE [Suspect]
     Active Substance: ALBENDAZOLE
     Indication: Strongyloidiasis
  4. THYMOGLOBULIN [Suspect]
     Active Substance: LAPINE T-LYMPHOCYTE IMMUNE GLOBULIN
     Indication: Renal transplant
  5. MYFORTIC [Suspect]
     Active Substance: MYCOPHENOLATE SODIUM
     Indication: Immunosuppressant drug therapy

REACTIONS (6)
  - Septic shock [Fatal]
  - Gastrointestinal haemorrhage [Fatal]
  - Atrial fibrillation [Fatal]
  - Pathogen resistance [Fatal]
  - Staphylococcal infection [Fatal]
  - Bronchopulmonary aspergillosis [Fatal]
